FAERS Safety Report 16935354 (Version 1)
Quarter: 2019Q4

REPORT INFORMATION
  Report Type: Spontaneous
  Country: US (occurrence: US)
  Receive Date: 20191018
  Receipt Date: 20191018
  Transmission Date: 20200122
  Serious: Yes (Other)
  Sender: FDA-Public Use
  Company Number: US-GLAXOSMITHKLINE-US2019185307

PATIENT
  Age: 54 Year
  Sex: Female

DRUGS (1)
  1. SENSODYNE PRONAMEL INTENSIVE ENAMEL REPAIR CLEAN MINT [Suspect]
     Active Substance: POTASSIUM NITRATE\SODIUM FLUORIDE
     Indication: DENTAL CARE
     Dosage: UNK UNK, BID
     Dates: start: 20190712, end: 20191009

REACTIONS (7)
  - Paraesthesia oral [Recovering/Resolving]
  - Dental caries [Recovering/Resolving]
  - Suicidal ideation [Recovering/Resolving]
  - Wrong technique in product usage process [Recovering/Resolving]
  - Dry mouth [Recovering/Resolving]
  - Retching [Recovering/Resolving]
  - Amyotrophic lateral sclerosis [Recovering/Resolving]

NARRATIVE: CASE EVENT DATE: 20190712
